FAERS Safety Report 16023183 (Version 3)
Quarter: 2019Q4

REPORT INFORMATION
  Report Type: Report from Study
  Country: JP (occurrence: JP)
  Receive Date: 20190301
  Receipt Date: 20191206
  Transmission Date: 20200122
  Serious: Yes (Death, Hospitalization, Other)
  Sender: FDA-Public Use
  Company Number: JP-ACTELION-A-CH2019-186756

PATIENT
  Age: 67 Year
  Sex: Male
  Weight: 48 kg

DRUGS (21)
  1. OPSUMIT [Suspect]
     Active Substance: MACITENTAN
     Indication: PULMONARY HYPERTENSION
     Dosage: 10 MG, QD
     Route: 048
     Dates: start: 20160914, end: 20180611
  2. NEXIUM [Concomitant]
     Active Substance: ESOMEPRAZOLE MAGNESIUM
  3. ESANBUTOL [Concomitant]
     Active Substance: ETHAMBUTOL HYDROCHLORIDE
  4. AZULFIDINE EN-TABS [Concomitant]
     Active Substance: SULFASALAZINE
  5. KOLBET [Concomitant]
     Active Substance: IGURATIMOD
  6. DIART [Concomitant]
     Active Substance: AZOSEMIDE
  7. MUCOSOLVAN [Concomitant]
     Active Substance: AMBROXOL HYDROCHLORIDE
  8. CLARITH [Concomitant]
     Active Substance: CLARITHROMYCIN
  9. HYPEN [Concomitant]
  10. LOXONIN [Concomitant]
     Active Substance: LOXOPROFEN SODIUM
  11. HALIZON [Concomitant]
     Active Substance: AMPHOTERICIN B
  12. SELARA [Concomitant]
     Active Substance: EPLERENONE
  13. SPIRONOLACTONE. [Concomitant]
     Active Substance: SPIRONOLACTONE
  14. MAGLAX [Concomitant]
     Active Substance: MAGNESIUM OXIDE
  15. CODEINE [Concomitant]
     Active Substance: CODEINE
  16. PREDNISOLONE. [Concomitant]
     Active Substance: PREDNISOLONE
  17. CARBOCISTEINE [Concomitant]
     Active Substance: CARBOCYSTEINE
  18. REVATIO [Concomitant]
     Active Substance: SILDENAFIL CITRATE
  19. CELECOX [Concomitant]
     Active Substance: CELECOXIB
  20. LUNESTA [Concomitant]
     Active Substance: ESZOPICLONE
  21. DIHYDROCODEINE PHOSPHATE [Concomitant]
     Active Substance: DIHYDROCODEINE PHOSPHATE

REACTIONS (5)
  - Respiratory failure [Not Recovered/Not Resolved]
  - Acute respiratory failure [Fatal]
  - Interstitial lung disease [Not Recovered/Not Resolved]
  - Dyspnoea [Not Recovered/Not Resolved]
  - Oxygen saturation decreased [Not Recovered/Not Resolved]

NARRATIVE: CASE EVENT DATE: 20180603
